FAERS Safety Report 12551754 (Version 1)
Quarter: 2016Q3

REPORT INFORMATION
  Report Type: Spontaneous
  Country: US (occurrence: None)
  Receive Date: 20160712
  Receipt Date: 20160712
  Transmission Date: 20161109
  Serious: Yes (Other)
  Sender: FDA-Public Use
  Company Number: None

PATIENT
  Age: 36 Year
  Sex: Female
  Weight: 61.24 kg

DRUGS (1)
  1. GEODON [Suspect]
     Active Substance: ZIPRASIDONE HYDROCHLORIDE\ZIPRASIDONE MESYLATE

REACTIONS (7)
  - Dystonia [None]
  - Malaise [None]
  - Dysphagia [None]
  - Anxiety [None]
  - Paranoia [None]
  - Depression [None]
  - Bruxism [None]

NARRATIVE: CASE EVENT DATE: 20160706
